FAERS Safety Report 20925979 (Version 1)
Quarter: 2022Q2

REPORT INFORMATION
  Report Type: Spontaneous
  Country: US (occurrence: US)
  Receive Date: 20220607
  Receipt Date: 20220607
  Transmission Date: 20220720
  Serious: No
  Sender: FDA-Public Use
  Company Number: US-AMGEN-USASP2022097192

PATIENT

DRUGS (2)
  1. NEUPOGEN [Suspect]
     Active Substance: FILGRASTIM
     Indication: Product used for unknown indication
     Dosage: 300 MICROGRAM
     Route: 065
  2. NEUPOGEN [Suspect]
     Active Substance: FILGRASTIM
     Dosage: 480 MILLIGRAM
     Route: 065

REACTIONS (1)
  - Intercepted product storage error [Unknown]
